FAERS Safety Report 4587283-2 (Version None)
Quarter: 2005Q1

REPORT INFORMATION
  Report Type: 
  Country: None (occurrence: None)
  Receive Date: 20050215
  Receipt Date: 20050208
  Transmission Date: 20050727
  Serious: Yes (Life-Threatening)
  Sender: FDA-Public Use
  Company Number: 2005GB00268

PATIENT
  Sex: Male

DRUGS (1)
  1. QUETIAPINE FUMARATE [Suspect]
     Dosage: 50 MG PO
     Route: 048

REACTIONS (4)
  - CARDIAC ARREST [None]
  - CONVULSION [None]
  - FALL [None]
  - RESPIRATORY ARREST [None]
